FAERS Safety Report 14910586 (Version 2)
Quarter: 2018Q2

REPORT INFORMATION
  Report Type: Report from Study
  Country: NO (occurrence: NO)
  Receive Date: 20180517
  Receipt Date: 20180517
  Transmission Date: 20180711
  Serious: Yes (Hospitalization)
  Sender: FDA-Public Use
  Company Number: PHHO2018NO005347

PATIENT
  Age: 73 Year
  Sex: Male
  Weight: 82 kg

DRUGS (8)
  1. ALBYL-E [Concomitant]
     Active Substance: ASPIRIN\MAGNESIUM OXIDE
     Indication: ACUTE MYOCARDIAL INFARCTION
     Dosage: 75 MG, QD
     Route: 048
     Dates: end: 20180412
  2. BORTEZOMIB [Suspect]
     Active Substance: BORTEZOMIB
     Dosage: 2 MG, OT
     Route: 058
     Dates: start: 20180423
  3. BORTEZOMIB [Suspect]
     Active Substance: BORTEZOMIB
     Indication: PLASMA CELL MYELOMA
     Dosage: 2 MG, OT
     Route: 058
     Dates: start: 20180212, end: 20180419
  4. DEXAMETHASONE. [Suspect]
     Active Substance: DEXAMETHASONE
     Indication: PLASMA CELL MYELOMA
     Dosage: 20 MG, OT
     Route: 048
     Dates: start: 20180212, end: 20180420
  5. LBH589 [Suspect]
     Active Substance: PANOBINOSTAT
     Dosage: 10 MG, OT
     Route: 048
     Dates: start: 20180423
  6. ENALAPRIL [Concomitant]
     Active Substance: ENALAPRIL
     Indication: PROPHYLAXIS
     Dosage: 2.5 MG, QD
     Route: 048
     Dates: end: 20180412
  7. DEXAMETHASONE. [Suspect]
     Active Substance: DEXAMETHASONE
     Dosage: 20 MG, OT
     Route: 048
     Dates: start: 20180423
  8. LBH589 [Suspect]
     Active Substance: PANOBINOSTAT
     Indication: PLASMA CELL MYELOMA
     Dosage: 10 MG, OT
     Route: 048
     Dates: start: 20180212, end: 20180420

REACTIONS (1)
  - Atrial fibrillation [Recovered/Resolved]

NARRATIVE: CASE EVENT DATE: 20180418
